FAERS Safety Report 6847318-0 (Version None)
Quarter: 2010Q3

REPORT INFORMATION
  Report Type: 
  Country: None (occurrence: None)
  Receive Date: 20100713
  Receipt Date: 20100705
  Transmission Date: 20110219
  Serious: Yes (Death)
  Sender: FDA-Public Use
  Company Number: 2010MA000567

PATIENT
  Age: 50 Year
  Sex: Female

DRUGS (5)
  1. VENLAFAXINE HYDROCHLORIDE [Suspect]
     Indication: DEPRESSION
     Dosage: 225 MG;QD;PO
     Route: 048
     Dates: start: 20070815, end: 20100312
  2. QUETIAPINE [Concomitant]
  3. TEMAZEPAM [Concomitant]
  4. BISOPROLOL [Concomitant]
  5. OMEPRAZOLE [Concomitant]

REACTIONS (3)
  - CONFUSIONAL STATE [None]
  - DRUG TOXICITY [None]
  - LOSS OF CONSCIOUSNESS [None]
